FAERS Safety Report 9071361 (Version 1)
Quarter: 2013Q1

REPORT INFORMATION
  Report Type: Spontaneous
  Country: US (occurrence: US)
  Receive Date: 20130206
  Receipt Date: 20130206
  Transmission Date: 20140127
  Serious: No
  Sender: FDA-Public Use
  Company Number: US-ALLERGAN-1210785US

PATIENT
  Age: 92 Year
  Sex: Male

DRUGS (6)
  1. RESTASIS? [Suspect]
     Indication: DRY EYE
     Dosage: 2 GTT, BID
     Route: 047
  2. LEVOXYL [Concomitant]
     Indication: HYPOTHYROIDISM
     Dosage: UNK UNK, QD
     Route: 048
  3. RAMIPRIL [Concomitant]
     Indication: PRODUCT USED FOR UNKNOWN INDICATION
     Dosage: UNK UNK, QD
     Route: 048
  4. AMLODIPINE [Concomitant]
     Indication: HYPERTENSION
     Dosage: UNK UNK, QD
     Route: 048
  5. OXAPROZIN [Concomitant]
     Indication: PAIN
     Dosage: 600 MG, QD
     Route: 048
  6. EYE INJECTIONS [Concomitant]
     Indication: PRODUCT USED FOR UNKNOWN INDICATION
     Dosage: UNK

REACTIONS (2)
  - Eyelid margin crusting [Unknown]
  - Eye discharge [Unknown]
